FAERS Safety Report 15022724 (Version 1)
Quarter: 2018Q2

REPORT INFORMATION
  Report Type: Spontaneous
  Country: US (occurrence: US)
  Receive Date: 20180618
  Receipt Date: 20180618
  Transmission Date: 20180711
  Serious: No
  Sender: FDA-Public Use
  Company Number: US-MYLANLABS-2018M1034844

PATIENT
  Sex: Female

DRUGS (1)
  1. METOPROLOL MYLAN [Suspect]
     Active Substance: METOPROLOL
     Indication: PALPITATIONS
     Dosage: 0.5 DF, BID

REACTIONS (2)
  - Palpitations [Recovered/Resolved]
  - Drug intolerance [Recovered/Resolved]
